FAERS Safety Report 9719720 (Version 2)
Quarter: 2015Q1

REPORT INFORMATION
  Report Type: Spontaneous
  Country: US (occurrence: US)
  Receive Date: 20131128
  Receipt Date: 20150221
  Transmission Date: 20150721
  Serious: Yes (Hospitalization, Other)
  Sender: FDA-Public Use
  Company Number: US-JNJFOC-20131113424

PATIENT
  Age: 11 Month
  Sex: Male
  Weight: 19.05 kg

DRUGS (3)
  1. MOTRIN INFANTS DROPS DYE-FREE 1OZ USA 30045019801 0045019801USA [Suspect]
     Active Substance: IBUPROFEN
     Indication: NASOPHARYNGITIS
     Dosage: EVERY 8-9 HOURS
     Route: 048
  2. MOTRIN INFANTS DROPS DYE-FREE 1OZ USA 30045019801 0045019801USA [Suspect]
     Active Substance: IBUPROFEN
     Indication: PYREXIA
     Dosage: EVERY 8-9 HOURS
     Route: 048
  3. HERBAL NOS [Concomitant]
     Active Substance: HERBALS
     Indication: PRODUCT USED FOR UNKNOWN INDICATION
     Route: 065

REACTIONS (5)
  - Cyanosis [Recovering/Resolving]
  - Retching [Recovering/Resolving]
  - Product contamination [Unknown]
  - Choking [Recovering/Resolving]
  - Somnolence [Recovering/Resolving]
